FAERS Safety Report 15404380 (Version 2)
Quarter: 2018Q4

REPORT INFORMATION
  Report Type: Spontaneous
  Country: CH (occurrence: CH)
  Receive Date: 20180919
  Receipt Date: 20181001
  Transmission Date: 20190204
  Serious: Yes (Hospitalization)
  Sender: FDA-Public Use
  Company Number: PHHY2018CH094324

PATIENT
  Age: 59 Year
  Sex: Female
  Weight: 72 kg

DRUGS (10)
  1. ATORVASTATIN [Concomitant]
     Active Substance: ATORVASTATIN
     Indication: DYSLIPIDAEMIA
     Dosage: 20 MG, QD (1-0-0-0)
     Route: 048
  2. CO-AMOXI [Concomitant]
     Active Substance: AMOXICILLIN\CLAVULANATE POTASSIUM
     Indication: PRODUCT USED FOR UNKNOWN INDICATION
     Dosage: 1 G, BID
     Route: 065
  3. PANTOPRAZOL [Concomitant]
     Active Substance: PANTOPRAZOLE SODIUM
     Indication: PRODUCT USED FOR UNKNOWN INDICATION
     Dosage: 40 MG, QD  (1-0-0-0)
     Route: 065
     Dates: end: 20180712
  4. CIPROXIN [Concomitant]
     Active Substance: CIPROFLOXACIN
     Indication: PRODUCT USED FOR UNKNOWN INDICATION
     Dosage: 500 MG, UNK(1-0-1-0)
     Route: 065
     Dates: start: 201807, end: 20180712
  5. LACTIBIANE [Concomitant]
     Indication: PRODUCT USED FOR UNKNOWN INDICATION
     Dosage: UNK
     Route: 065
  6. COSENTYX [Suspect]
     Active Substance: SECUKINUMAB
     Indication: PSORIASIS
     Dosage: 300 MG, QMO
     Route: 058
     Dates: start: 20160208, end: 20180423
  7. NOVALGIN (METAMIZOLE SODIUM) [Concomitant]
     Active Substance: METAMIZOLE SODIUM
     Indication: PRODUCT USED FOR UNKNOWN INDICATION
     Dosage: 40 GTT, QID (4X PER 24 HRS. I.R)
     Route: 065
  8. COSENTYX [Suspect]
     Active Substance: SECUKINUMAB
     Indication: PSORIATIC ARTHROPATHY
  9. ATORVASTATIN [Concomitant]
     Active Substance: ATORVASTATIN
     Dosage: 40 MG, QD (1-0-0-0)
     Route: 048
  10. PIROXICAM. [Concomitant]
     Active Substance: PIROXICAM
     Indication: PRODUCT USED FOR UNKNOWN INDICATION
     Dosage: 1 DF, QD  (1-0-0-0)
     Route: 065

REACTIONS (18)
  - Urinary tract infection bacterial [Not Recovered/Not Resolved]
  - Dysuria [Unknown]
  - Pyrexia [Recovered/Resolved]
  - General physical health deterioration [Recovering/Resolving]
  - Mental disorder [Unknown]
  - Headache [Unknown]
  - Calculus urinary [Not Recovered/Not Resolved]
  - Chills [Unknown]
  - Cough [Unknown]
  - Renal pain [Unknown]
  - Dizziness [Unknown]
  - Nephrolithiasis [Unknown]
  - Cystitis [Unknown]
  - Hypovolaemia [Unknown]
  - Hyponatraemia [Unknown]
  - Groin pain [Unknown]
  - Pyelonephritis [Not Recovered/Not Resolved]
  - Urogenital infection bacterial [Unknown]

NARRATIVE: CASE EVENT DATE: 201802
